FAERS Safety Report 12386961 (Version 1)
Quarter: 2016Q2

REPORT INFORMATION
  Report Type: Spontaneous
  Country: ES (occurrence: ES)
  Receive Date: 20160519
  Receipt Date: 20160519
  Transmission Date: 20160815
  Serious: Yes (Other)
  Sender: FDA-Public Use
  Company Number: ES-PFIZER INC-2016260761

PATIENT
  Sex: Male
  Weight: .75 kg

DRUGS (3)
  1. SILDENAFIL CITRATE. [Suspect]
     Active Substance: SILDENAFIL CITRATE
     Dosage: 1 MG/KG EVERY 6 HOURS
     Route: 048
  2. NITRIC OXIDE. [Concomitant]
     Active Substance: NITRIC OXIDE
     Dosage: UNK (20 PPM)
     Route: 055
  3. SILDENAFIL CITRATE. [Suspect]
     Active Substance: SILDENAFIL CITRATE
     Indication: PULMONARY HYPERTENSION
     Dosage: 0.5 MG/KG EVERY 6 HOURS
     Route: 048

REACTIONS (2)
  - Retinopathy of prematurity [Unknown]
  - Product use issue [Unknown]
